FAERS Safety Report 6914965-7 (Version None)
Quarter: 2010Q3

REPORT INFORMATION
  Report Type: 
  Country: None (occurrence: None)
  Receive Date: 20100804
  Receipt Date: 20100721
  Transmission Date: 20110219
  Serious: Yes (Other)
  Sender: FDA-Public Use
  Company Number: 7004173

PATIENT
  Age: 63 Year
  Sex: Female

DRUGS (2)
  1. REBIF [Suspect]
     Indication: MULTIPLE SCLEROSIS
     Dosage: 44 MCG, 3 IN 1 WK, SUBCUTANEOUS; 22 MCG,  SUBCUTANEOUS
     Route: 059
     Dates: start: 20100222, end: 20100101
  2. REBIF [Suspect]
     Indication: MULTIPLE SCLEROSIS
     Dosage: 44 MCG, 3 IN 1 WK, SUBCUTANEOUS; 22 MCG,  SUBCUTANEOUS
     Route: 059
     Dates: start: 20100101

REACTIONS (5)
  - CARDIAC DISORDER [None]
  - DYSPNOEA [None]
  - HAEMATOCHEZIA [None]
  - HYPERTENSION [None]
  - INJECTION SITE HAEMORRHAGE [None]
